FAERS Safety Report 13645829 (Version 1)
Quarter: 2017Q2

REPORT INFORMATION
  Report Type: Spontaneous
  Country: BE (occurrence: BE)
  Receive Date: 20170613
  Receipt Date: 20170613
  Transmission Date: 20170830
  Serious: Yes (Hospitalization, Other)
  Sender: FDA-Public Use
  Company Number: BE-APOTEX-2017AP012688

PATIENT
  Age: 69 Year
  Sex: Male

DRUGS (3)
  1. TRAMADOL. [Suspect]
     Active Substance: TRAMADOL
     Indication: NEURALGIA
     Dosage: UNK
     Route: 065
  2. ACICLOVIR APOTEX TABLETTEN [Suspect]
     Active Substance: ACYCLOVIR
     Indication: OPHTHALMIC HERPES ZOSTER
     Dosage: 800 MG, DAILY DOSE
     Route: 048
  3. ACICLOVIR APOTEX TABLETTEN [Suspect]
     Active Substance: ACYCLOVIR
     Dosage: 750 MG, DAILY DOSE
     Route: 042

REACTIONS (15)
  - Encephalitis [None]
  - Pyrexia [None]
  - Epilepsy [None]
  - Coma [None]
  - Pneumonia aspiration [None]
  - Hyperkalaemia [None]
  - Nystagmus [None]
  - Neurotoxicity [Recovered/Resolved]
  - Acute kidney injury [None]
  - Areflexia [None]
  - Hallucination, visual [None]
  - Pleocytosis [None]
  - Haemodialysis [None]
  - Nephropathy toxic [Recovered/Resolved]
  - Hyponatraemia [None]
